FAERS Safety Report 5174701-4 (Version None)
Quarter: 2006Q4

REPORT INFORMATION
  Report Type: 
  Country: None (occurrence: None)
  Receive Date: 20061204
  Receipt Date: 20061125
  Transmission Date: 20070319
  Serious: No
  Sender: FDA-Public Use
  Company Number: 2006-150764-NL

PATIENT
  Age: 21 Year
  Sex: Male

DRUGS (3)
  1. DEXAMETHASONE [Suspect]
     Indication: FACE OEDEMA
     Dosage: 16 MG
  2. PREDNISOLONE [Suspect]
     Indication: NON-HODGKIN'S LYMPHOMA
     Dosage: DF
  3. INDUCTION-REMISSION CHEMOTHERAPY [Concomitant]

REACTIONS (1)
  - HEPATIC STEATOSIS [None]
